FAERS Safety Report 12169948 (Version 2)
Quarter: 2016Q2

REPORT INFORMATION
  Report Type: Report from Study
  Country: PH (occurrence: PH)
  Receive Date: 20160310
  Receipt Date: 20160419
  Transmission Date: 20160815
  Serious: Yes (Life-Threatening, Hospitalization, Other)
  Sender: FDA-Public Use
  Company Number: PHHY2016PH031238

PATIENT
  Age: 49 Year
  Sex: Male

DRUGS (2)
  1. LANTUS [Concomitant]
     Active Substance: INSULIN GLARGINE
     Indication: DIABETES MELLITUS
     Dosage: 20-25 UNITS, QD
     Route: 058
     Dates: start: 2012, end: 201601
  2. GLIVEC [Suspect]
     Active Substance: IMATINIB MESYLATE
     Indication: CHRONIC MYELOID LEUKAEMIA
     Dosage: 600 MG, QD
     Route: 048
     Dates: start: 201412, end: 20160214

REACTIONS (11)
  - Chills [Recovered/Resolved]
  - Face oedema [Recovered/Resolved]
  - Platelet count decreased [Recovered/Resolved]
  - Blood pressure increased [Recovering/Resolving]
  - Oedema peripheral [Recovered/Resolved]
  - Splenitis [Recovered/Resolved]
  - Haematemesis [Recovered/Resolved]
  - Pneumonia [Recovering/Resolving]
  - Vomiting [Unknown]
  - Anaemia [Unknown]
  - Blood creatinine increased [Recovering/Resolving]

NARRATIVE: CASE EVENT DATE: 201510
